FAERS Safety Report 23506202 (Version 1)
Quarter: 2024Q1

REPORT INFORMATION
  Report Type: Other
  Country: None (occurrence: US)
  Receive Date: 20240209
  Receipt Date: 20240209
  Transmission Date: 20240409
  Serious: Yes (Disabling)
  Sender: FDA-Public Use
  Company Number: US-B.Braun Medical Inc.-2152878

PATIENT
  Age: 40 Year
  Sex: Female

DRUGS (3)
  1. HEPARIN SODIUM IN DEXTROSE [Suspect]
     Active Substance: HEPARIN SODIUM
     Indication: Anticoagulant therapy
  2. Pfizer-BioNTech (BNT162b2 mRNA) COVID-19 vaccine [Concomitant]
  3. LOSARTAN [Concomitant]
     Active Substance: LOSARTAN

REACTIONS (1)
  - Drug ineffective [None]
